FAERS Safety Report 21375167 (Version 1)
Quarter: 2022Q3

REPORT INFORMATION
  Report Type: Spontaneous
  Country: US (occurrence: US)
  Receive Date: 20220926
  Receipt Date: 20220926
  Transmission Date: 20221026
  Serious: Yes (Hospitalization, Other)
  Sender: FDA-Public Use
  Company Number: US-009507513-2209USA007275

PATIENT
  Sex: Female

DRUGS (2)
  1. KEYTRUDA [Suspect]
     Active Substance: PEMBROLIZUMAB
     Indication: Ovarian cancer
     Dosage: UNK
     Dates: start: 2019
  2. AVASTIN [Concomitant]
     Active Substance: BEVACIZUMAB
     Dosage: UNK

REACTIONS (6)
  - Malignant neoplasm progression [Unknown]
  - Drug effective for unapproved indication [Unknown]
  - Off label use [Unknown]
  - Product availability issue [Unknown]
  - Wrong technique in product usage process [Unknown]
  - Product use issue [Unknown]
